FAERS Safety Report 8536610-X (Version None)
Quarter: 2012Q3

REPORT INFORMATION
  Report Type: 
  Country: None (occurrence: None)
  Receive Date: 20120725
  Receipt Date: 20120719
  Transmission Date: 20120928
  Serious: No
  Sender: FDA-Public Use
  Company Number: US-PFIZER INC-2012175553

PATIENT
  Sex: Male
  Weight: 71.655 kg

DRUGS (3)
  1. ALSUMA [Suspect]
     Indication: CLUSTER HEADACHE
     Dosage: 6 MG, AS NEEDED
     Dates: start: 20120711
  2. SIMVASTATIN [Concomitant]
     Indication: BLOOD CHOLESTEROL INCREASED
     Dosage: 40 MG, DAILY
  3. OXYGEN [Concomitant]
     Indication: CLUSTER HEADACHE
     Dosage: UNK

REACTIONS (5)
  - INJECTION SITE SWELLING [None]
  - NEEDLE ISSUE [None]
  - INJECTION SITE HAEMORRHAGE [None]
  - INJECTION SITE DISCOLOURATION [None]
  - INJECTION SITE HAEMATOMA [None]
